FAERS Safety Report 13872891 (Version 2)
Quarter: 2018Q2

REPORT INFORMATION
  Report Type: Spontaneous
  Country: US (occurrence: US)
  Receive Date: 20170816
  Receipt Date: 20180503
  Transmission Date: 20180711
  Serious: Yes (Other)
  Sender: FDA-Public Use
  Company Number: US-TAKEDA-2017TUS016862

PATIENT
  Age: 32 Year
  Sex: Female
  Weight: 47.39 kg

DRUGS (5)
  1. GABAPENTIN. [Concomitant]
     Active Substance: GABAPENTIN
     Indication: VESTIBULAR MIGRAINE
     Dosage: 400 MG, UNK
     Route: 048
     Dates: start: 201710
  2. ENTYVIO [Suspect]
     Active Substance: VEDOLIZUMAB
     Indication: CROHN^S DISEASE
     Dosage: 300 MG, UNK
     Route: 042
     Dates: start: 20170718
  3. TOPIRAMATE. [Concomitant]
     Active Substance: TOPIRAMATE
     Indication: VESTIBULAR MIGRAINE
     Dosage: 100 MG, UNK
     Route: 048
     Dates: start: 201709
  4. SERTRALINE [Concomitant]
     Active Substance: SERTRALINE HYDROCHLORIDE
     Indication: VESTIBULAR MIGRAINE
     Dosage: 100 MG, UNK
     Route: 048
     Dates: start: 201702
  5. AZATHIOPRINE. [Concomitant]
     Active Substance: AZATHIOPRINE
     Indication: CROHN^S DISEASE
     Dosage: 50 MG, UNK
     Route: 048
     Dates: start: 20170718

REACTIONS (1)
  - Vision blurred [Recovered/Resolved]

NARRATIVE: CASE EVENT DATE: 20170718
